FAERS Safety Report 21754543 (Version 1)
Quarter: 2022Q4

REPORT INFORMATION
  Report Type: Report from Study
  Country: US (occurrence: US)
  Receive Date: 20221220
  Receipt Date: 20221220
  Transmission Date: 20230113
  Serious: Yes (Other)
  Sender: FDA-Public Use
  Company Number: US-PFIZER INC-202201375117

PATIENT
  Sex: Female

DRUGS (6)
  1. DOXORUBICIN HYDROCHLORIDE [Suspect]
     Active Substance: DOXORUBICIN HYDROCHLORIDE
     Indication: Triple negative breast cancer
     Dosage: UNK
  2. CYCLOPHOSPHAMIDE [Suspect]
     Active Substance: CYCLOPHOSPHAMIDE
     Indication: Triple negative breast cancer
     Dosage: UNK
  3. PACLITAXEL [Concomitant]
     Active Substance: PACLITAXEL
     Indication: Triple negative breast cancer
     Dosage: 80 MG/M2 IV WEEKLY FOR 12 WEEKS
     Route: 042
  4. RINTATOLIMOD [Concomitant]
     Active Substance: RINTATOLIMOD
     Indication: Triple negative breast cancer
     Dosage: 200 MG, DAILY, DAYS 1-3
     Route: 042
  5. CELECOXIB [Concomitant]
     Active Substance: CELECOXIB
     Indication: Triple negative breast cancer
     Dosage: 200 MG, 2X/DAY, DAYS 1-3
     Route: 048
  6. INTERFERON ALFA-2B [Concomitant]
     Active Substance: INTERFERON ALFA-2B
     Indication: Triple negative breast cancer
     Dosage: UNK

REACTIONS (1)
  - Pneumonia [Unknown]
